FAERS Safety Report 18443352 (Version 1)
Quarter: 2020Q4

REPORT INFORMATION
  Report Type: Report from Study
  Country: FR (occurrence: FR)
  Receive Date: 20201030
  Receipt Date: 20201030
  Transmission Date: 20210114
  Serious: Yes (Other)
  Sender: FDA-Public Use
  Company Number: FR-EMD SERONO-9193204

PATIENT
  Sex: Female

DRUGS (9)
  1. ORGALUTRAN [Suspect]
     Active Substance: GANIRELIX ACETATE
     Indication: ASSISTED REPRODUCTIVE TECHNOLOGY
  2. DUPHASTON [Suspect]
     Active Substance: DYDROGESTERONE
     Indication: ASSISTED REPRODUCTIVE TECHNOLOGY
  3. PUREGON                            /01348901/ [Suspect]
     Active Substance: FOLLITROPIN
     Indication: ASSISTED REPRODUCTIVE TECHNOLOGY
  4. PROVAMES [Suspect]
     Active Substance: ESTRADIOL
     Indication: ASSISTED REPRODUCTIVE TECHNOLOGY
     Dosage: STARTED IN 2020
  5. OVITRELLE [Suspect]
     Active Substance: CHORIOGONADOTROPIN ALFA
     Indication: ASSISTED REPRODUCTIVE TECHNOLOGY
  6. GONAL-F [Suspect]
     Active Substance: FOLLITROPIN
     Dosage: IN 2020
  7. GONAL-F [Suspect]
     Active Substance: FOLLITROPIN
     Indication: ASSISTED REPRODUCTIVE TECHNOLOGY
  8. GONAL-F [Suspect]
     Active Substance: FOLLITROPIN
     Dosage: IN 2020
  9. PROGESTAN [Suspect]
     Active Substance: PROGESTERONE
     Indication: ASSISTED REPRODUCTIVE TECHNOLOGY

REACTIONS (10)
  - Vomiting [Unknown]
  - Injection site bruising [Unknown]
  - Endometriosis [Unknown]
  - Therapy non-responder [Unknown]
  - Sensory loss [Unknown]
  - Dysmenorrhoea [Unknown]
  - Abdominal discomfort [Unknown]
  - Drug ineffective [Unknown]
  - Syncope [Unknown]
  - Feeling abnormal [Unknown]

NARRATIVE: CASE EVENT DATE: 2019
